FAERS Safety Report 11157951 (Version 1)
Quarter: 2015Q2

REPORT INFORMATION
  Report Type: Spontaneous
  Country: IT (occurrence: None)
  Receive Date: 20150601
  Receipt Date: 20150601
  Transmission Date: 20150821
  Serious: Yes (Other)
  Sender: FDA-Public Use
  Company Number: IT-H14001-15-00785

PATIENT
  Age: 29 Year
  Sex: Female

DRUGS (5)
  1. MICONAZOLE [Suspect]
     Active Substance: MICONAZOLE
     Indication: ORAL CANDIDIASIS
  2. ANTIPSYCHOTICS (ANTIPSYCHOTICS) [Concomitant]
     Active Substance: UNSPECIFIED INGREDIENT
  3. CONTRACEPTIVES [Suspect]
     Active Substance: UNSPECIFIED INGREDIENT
     Indication: PRODUCT USED FOR UNKNOWN INDICATION
     Route: 048
  4. CLOZAPINE. [Suspect]
     Active Substance: CLOZAPINE
     Indication: PRODUCT USED FOR UNKNOWN INDICATION
  5. FLUCONAZOLE. [Suspect]
     Active Substance: FLUCONAZOLE
     Indication: ORAL CANDIDIASIS
     Route: 048

REACTIONS (8)
  - Vomiting [None]
  - Palpitations [None]
  - Pericardial effusion [None]
  - Eosinophilia [None]
  - Pericarditis [None]
  - Nausea [None]
  - Drug interaction [None]
  - Echocardiogram abnormal [None]
